FAERS Safety Report 17340226 (Version 1)
Quarter: 2020Q1

REPORT INFORMATION
  Report Type: Spontaneous
  Country: FR (occurrence: FR)
  Receive Date: 20200129
  Receipt Date: 20200129
  Transmission Date: 20200409
  Serious: Yes (Hospitalization)
  Sender: FDA-Public Use
  Company Number: FR-ELI_LILLY_AND_COMPANY-FR202001011864

PATIENT
  Age: 55 Year
  Sex: Male
  Weight: 62 kg

DRUGS (3)
  1. CARBOPLATIN ACCORD [Suspect]
     Active Substance: CARBOPLATIN
     Indication: LUNG ADENOCARCINOMA STAGE IV
     Dosage: 21/10/19: C1 670 MG; 23/11/2019 : C2 480 MG
     Route: 041
     Dates: start: 20191021, end: 20191123
  2. PEMETREXED ZENTIVA [PEMETREXED DIARGININE] [Suspect]
     Active Substance: PEMETREXED DIARGININE
     Indication: LUNG ADENOCARCINOMA STAGE IV
     Dosage: 21/10/19: C1 ; 23/11/2019 : C2
     Route: 041
     Dates: start: 20191021, end: 20191123
  3. ZYPREXA [Suspect]
     Active Substance: OLANZAPINE
     Indication: PRODUCT USED FOR UNKNOWN INDICATION
     Dosage: UNK UNK, UNKNOWN
     Route: 048
     Dates: start: 201912, end: 201912

REACTIONS (3)
  - Blood bilirubin increased [Recovering/Resolving]
  - Hepatocellular injury [Recovering/Resolving]
  - Off label use [Unknown]

NARRATIVE: CASE EVENT DATE: 20191223
